FAERS Safety Report 8990735 (Version 3)
Quarter: 2014Q2

REPORT INFORMATION
  Report Type: Report from Study
  Country: FR (occurrence: FR)
  Receive Date: 20121228
  Receipt Date: 20140422
  Transmission Date: 20141212
  Serious: Yes (Hospitalization)
  Sender: FDA-Public Use
  Company Number: FR-ROCHE-1174843

PATIENT
  Age: 41 Year
  Sex: Female

DRUGS (12)
  1. SOMATROPIN [Suspect]
     Indication: GROWTH HORMONE DEFICIENCY
     Dosage: 10 MG / 2 ML
     Route: 058
     Dates: start: 20070724, end: 200812
  2. LEVOTHYROXINE SODIUM [Concomitant]
     Indication: SUPPLEMENTATION THERAPY
     Route: 065
     Dates: start: 2006
  3. SIMVASTATIN [Concomitant]
     Route: 048
  4. NAFTIDROFURYL OXALATE [Concomitant]
     Route: 048
  5. BENFLUOREX HYDROCHLORIDE [Concomitant]
     Route: 048
  6. TRAMADOL HYDROCHLORIDE [Concomitant]
     Route: 048
  7. ACETYLSALICYLATE LYSINE [Concomitant]
     Route: 048
  8. PAROXETINE HYDROCHLORIDE [Concomitant]
     Route: 048
  9. PANTOPRAZOLE [Concomitant]
     Route: 048
  10. ANETHOLTRITHIONE [Concomitant]
     Route: 048
  11. AMITRIPTYLINE HYDROCHLORIDE [Concomitant]
     Route: 048
  12. MIZOLASTINE [Concomitant]
     Route: 048

REACTIONS (1)
  - Sleep apnoea syndrome [Not Recovered/Not Resolved]
